FAERS Safety Report 12840440 (Version 1)
Quarter: 2016Q4

REPORT INFORMATION
  Report Type: Spontaneous
  Country: US (occurrence: US)
  Receive Date: 20161012
  Receipt Date: 20161012
  Transmission Date: 20170207
  Serious: No
  Sender: FDA-Public Use
  Company Number: US-JUBILANT CADISTA PHARMACEUTICALS-2016JUB00282

PATIENT
  Age: 56 Year
  Sex: Male
  Weight: 141.4 kg

DRUGS (3)
  1. TYVASO [Concomitant]
     Active Substance: TREPROSTINIL
     Dosage: 72 ?G, 4X/DAY
     Route: 055
     Dates: start: 20140612
  2. PREDNISONE. [Suspect]
     Active Substance: PREDNISONE
     Indication: COUGH
  3. PREDNISONE. [Suspect]
     Active Substance: PREDNISONE
     Indication: NASAL CONGESTION
     Dosage: UNK
     Dates: start: 201607

REACTIONS (1)
  - Blood glucose increased [Unknown]

NARRATIVE: CASE EVENT DATE: 201607
